FAERS Safety Report 9650789 (Version 1)
Quarter: 2013Q4

REPORT INFORMATION
  Report Type: Spontaneous
  Country: FR (occurrence: FR)
  Receive Date: 20131029
  Receipt Date: 20131029
  Transmission Date: 20140711
  Serious: Yes (Hospitalization)
  Sender: FDA-Public Use
  Company Number: FR-ASTRAZENECA-2013SE78415

PATIENT
  Age: 28066 Day
  Sex: Female

DRUGS (13)
  1. CRESTOR [Suspect]
     Indication: DYSLIPIDAEMIA
     Route: 048
     Dates: start: 20130702
  2. NUREFLEX [Suspect]
     Indication: PAIN
     Dates: start: 20130702
  3. PHYSIOTENS [Suspect]
     Indication: HYPERTENSION
     Route: 048
     Dates: start: 20130702
  4. RASILEZ [Suspect]
     Indication: HYPERTENSION
     Route: 048
     Dates: start: 20130702
  5. MOPRAL [Concomitant]
     Indication: GASTROOESOPHAGEAL REFLUX DISEASE
     Route: 048
     Dates: start: 20130702
  6. STILNOX [Concomitant]
     Indication: INSOMNIA
     Route: 048
     Dates: start: 20130702
  7. SEROPLEX [Concomitant]
     Indication: DEPRESSION
     Route: 048
     Dates: start: 20130702
  8. CELIPROLOL [Concomitant]
     Indication: HYPERTENSION
     Route: 048
     Dates: start: 20130702
  9. AERIUS [Concomitant]
     Indication: HYPERSENSITIVITY
     Route: 048
     Dates: start: 20130702
  10. LEXOMIL ROCHE [Concomitant]
     Indication: ANXIETY
     Route: 048
     Dates: start: 20130702
  11. TRANSIPEG [Concomitant]
     Indication: CONSTIPATION
     Route: 048
     Dates: start: 20130702
  12. SURMONTIL [Concomitant]
     Indication: DEPRESSION
     Route: 048
     Dates: start: 20130702
  13. LAMALINE [Concomitant]
     Dosage: 1 TO 3 DF DAILY
     Route: 048
     Dates: start: 20130702

REACTIONS (8)
  - Renal failure acute [Recovering/Resolving]
  - Dehydration [Recovered/Resolved]
  - Orthostatic hypotension [Recovered/Resolved]
  - Gastroenteritis [Unknown]
  - Fall [Unknown]
  - Rhabdomyolysis [Recovered/Resolved]
  - Breath sounds abnormal [Unknown]
  - Hernial eventration [Unknown]
